FAERS Safety Report 4325463-1 (Version None)
Quarter: 2004Q1

REPORT INFORMATION
  Report Type: 
  Country: None (occurrence: None)
  Receive Date: 20040324
  Receipt Date: 20040310
  Transmission Date: 20041129
  Serious: Yes (Other)
  Sender: FDA-Public Use
  Company Number: USA040360884

PATIENT
  Age: 75 Year
  Sex: Female

DRUGS (1)
  1. FORTEO [Suspect]
     Indication: OSTEOPOROSIS
     Dosage: 20 UG/I DAY
     Dates: start: 20040228

REACTIONS (4)
  - ACCIDENTAL OVERDOSE [None]
  - HYPOTENSION [None]
  - MEDICATION ERROR [None]
  - NAUSEA [None]
